FAERS Safety Report 25935133 (Version 1)
Quarter: 2025Q4

REPORT INFORMATION
  Report Type: Other
  Country: GB (occurrence: GB)
  Receive Date: 20251017
  Receipt Date: 20251017
  Transmission Date: 20260118
  Serious: Yes (Other)
  Sender: MACLEODS
  Company Number: None

PATIENT

DRUGS (2)
  1. OLMESARTAN [Suspect]
     Active Substance: OLMESARTAN
     Indication: Hypertension
     Dosage: 100MG
     Route: 065
  2. AMLODIPINE [Concomitant]
     Active Substance: AMLODIPINE BESYLATE

REACTIONS (1)
  - Gout [Recovered/Resolved with Sequelae]

NARRATIVE: CASE EVENT DATE: 20240819
